FAERS Safety Report 13174594 (Version 4)
Quarter: 2017Q2

REPORT INFORMATION
  Report Type: Spontaneous
  Country: GB (occurrence: GB)
  Receive Date: 20170201
  Receipt Date: 20170426
  Transmission Date: 20170830
  Serious: Yes (Hospitalization)
  Sender: FDA-Public Use
  Company Number: GB-SA-2017SA014820

PATIENT
  Age: 27 Month
  Sex: Male

DRUGS (1)
  1. MYOZYME [Suspect]
     Active Substance: ALGLUCOSIDASE ALFA
     Route: 041

REACTIONS (8)
  - Lower respiratory tract infection [Unknown]
  - Tonsillitis [Unknown]
  - Cough [Unknown]
  - Syncope [Unknown]
  - Cyanosis [Unknown]
  - Oropharyngeal pain [Unknown]
  - Aspiration [Not Recovered/Not Resolved]
  - Dehydration [Unknown]

NARRATIVE: CASE EVENT DATE: 20170113
